FAERS Safety Report 7267569-3 (Version None)
Quarter: 2011Q1

REPORT INFORMATION
  Report Type: 
  Country: None (occurrence: None)
  Receive Date: 20110201
  Receipt Date: 20110124
  Transmission Date: 20110831
  Serious: Yes (Other)
  Sender: FDA-Public Use
  Company Number: US-ELI_LILLY_AND_COMPANY-US200904000160

PATIENT
  Sex: Female
  Weight: 54.422 kg

DRUGS (5)
  1. PERCOCET [Concomitant]
     Indication: MUSCULOSKELETAL PAIN
  2. TYLENOL W/ CODEINE NO. 4 [Concomitant]
     Indication: FIBROMYALGIA
     Dosage: UNK, AS NEEDED
  3. HUMULIN R [Suspect]
  4. HUMULIN N [Suspect]
     Dosage: UNK, UNK
  5. HUMALOG [Suspect]
     Indication: DIABETES MELLITUS
     Dosage: UNK, UNK
     Route: 058

REACTIONS (15)
  - RETINAL DETACHMENT [None]
  - HYPOGLYCAEMIA [None]
  - DRUG EXPOSURE DURING PREGNANCY [None]
  - FALL [None]
  - EYE HAEMORRHAGE [None]
  - UPPER LIMB FRACTURE [None]
  - INJURY [None]
  - BLINDNESS UNILATERAL [None]
  - BLINDNESS [None]
  - BLOOD GLUCOSE DECREASED [None]
  - MUSCULOSKELETAL PAIN [None]
  - RETINAL SCAR [None]
  - DIABETIC RETINOPATHY [None]
  - JOINT RANGE OF MOTION DECREASED [None]
  - VISUAL IMPAIRMENT [None]
